FAERS Safety Report 7134317-7 (Version None)
Quarter: 2010Q4

REPORT INFORMATION
  Report Type: 
  Country: None (occurrence: None)
  Receive Date: 20101203
  Receipt Date: 20101126
  Transmission Date: 20110411
  Serious: Yes (Hospitalization)
  Sender: FDA-Public Use
  Company Number: FR-PFIZER INC-2010148738

PATIENT
  Age: 65 Year
  Sex: Female

DRUGS (12)
  1. SUTENT [Suspect]
     Indication: METASTATIC RENAL CELL CARCINOMA
     Dosage: 50 MG, 1X/DAY, 4 WEEKS ON/2 WEEKS OFF
     Route: 048
     Dates: start: 20080101
  2. SUTENT [Suspect]
     Dosage: 50 MG, 1X/DAY, 4 WEEKS ON/2 WEEKS OFF
     Route: 048
     Dates: start: 20101006
  3. KAYEXALATE [Suspect]
     Dosage: UNK
     Route: 048
     Dates: end: 20101104
  4. SPECIAFOLDINE [Suspect]
     Dosage: UNK
     Route: 048
     Dates: start: 20101006, end: 20101104
  5. AMLOR [Concomitant]
     Route: 048
  6. LEVOTHYROXINE SODIUM [Concomitant]
     Route: 048
  7. CORTANCYL [Concomitant]
     Route: 048
  8. NEXIUM [Concomitant]
     Route: 048
  9. MS CONTIN [Concomitant]
     Route: 048
  10. ACTISKENAN [Concomitant]
     Route: 048
  11. DOLIPRANE [Concomitant]
  12. DAFALGAN [Concomitant]
     Route: 048

REACTIONS (10)
  - ASTHENIA [None]
  - DISEASE PROGRESSION [None]
  - HAEMORRHAGE [None]
  - HAEMORRHOIDS [None]
  - METASTATIC RENAL CELL CARCINOMA [None]
  - PURPURA [None]
  - RECTAL HAEMORRHAGE [None]
  - SKIN LESION [None]
  - STOMATITIS [None]
  - THROMBOCYTOPENIA [None]
